FAERS Safety Report 7655913-4 (Version None)
Quarter: 2011Q3

REPORT INFORMATION
  Report Type: 
  Country: None (occurrence: None)
  Receive Date: 20110804
  Receipt Date: 20110804
  Transmission Date: 20111222
  Serious: Yes (Hospitalization)
  Sender: FDA-Public Use
  Company Number: None

PATIENT
  Age: 26 Year
  Sex: Female
  Weight: 61 kg

DRUGS (1)
  1. CALCIUM CHLORIDE 10% [Suspect]
     Indication: HYPOCALCAEMIA
     Dosage: 2 GRAMS
     Route: 041
     Dates: start: 20110731, end: 20110731

REACTIONS (5)
  - PAIN IN EXTREMITY [None]
  - INJECTION SITE EXTRAVASATION [None]
  - NECROSIS [None]
  - VENOUS OCCLUSION [None]
  - OEDEMA PERIPHERAL [None]
